FAERS Safety Report 17382767 (Version 1)
Quarter: 2020Q1

REPORT INFORMATION
  Report Type: Spontaneous
  Country: US (occurrence: US)
  Receive Date: 20200206
  Receipt Date: 20200206
  Transmission Date: 20200409
  Serious: No
  Sender: FDA-Public Use
  Company Number: US-ABBVIE-19K-163-2962711-00

PATIENT
  Sex: Male
  Weight: 104.42 kg

DRUGS (3)
  1. ASPRIN [Suspect]
     Active Substance: ASPIRIN
     Indication: PRODUCT USED FOR UNKNOWN INDICATION
     Dosage: DAILY
     Route: 048
  2. HUMIRA [Suspect]
     Active Substance: ADALIMUMAB
     Indication: PSORIASIS
     Dosage: ORIGINAL FORMULA
     Route: 058
  3. HUMIRA [Suspect]
     Active Substance: ADALIMUMAB
     Dosage: ORIGINAL FORMULA
     Route: 058

REACTIONS (10)
  - Psoriasis [Not Recovered/Not Resolved]
  - Wrong technique in product usage process [Unknown]
  - Injection site bruising [Not Recovered/Not Resolved]
  - Hypertension [Not Recovered/Not Resolved]
  - Arthralgia [Not Recovered/Not Resolved]
  - Headache [Not Recovered/Not Resolved]
  - Device issue [Unknown]
  - Blood cholesterol increased [Not Recovered/Not Resolved]
  - Incorrect dose administered [Unknown]
  - Overweight [Not Recovered/Not Resolved]
